FAERS Safety Report 22362413 (Version 1)
Quarter: 2023Q2

REPORT INFORMATION
  Report Type: Spontaneous
  Country: US (occurrence: US)
  Receive Date: 20230524
  Receipt Date: 20230524
  Transmission Date: 20230721
  Serious: No
  Sender: FDA-Public Use
  Company Number: US-BAUSCHBL-2023BNL004431

PATIENT
  Age: 48 Year
  Sex: Female

DRUGS (2)
  1. LUMIFY [Suspect]
     Active Substance: BRIMONIDINE TARTRATE
     Indication: Routine health maintenance
     Route: 047
     Dates: start: 20230412, end: 20230512
  2. LUMIFY [Suspect]
     Active Substance: BRIMONIDINE TARTRATE

REACTIONS (4)
  - Instillation site discolouration [Recovering/Resolving]
  - Blepharospasm [Unknown]
  - Instillation site irritation [Recovering/Resolving]
  - Instillation site erythema [Unknown]

NARRATIVE: CASE EVENT DATE: 20230101
